FAERS Safety Report 16191017 (Version 1)
Quarter: 2019Q2

REPORT INFORMATION
  Report Type: Other
  Country: GB (occurrence: GB)
  Receive Date: 20190412
  Receipt Date: 20190412
  Transmission Date: 20190711
  Serious: Yes (Other)
  Sender: FDA-Public Use
  Company Number: GB-APOTEX-2019AP011222

PATIENT
  Age: 62 Year
  Sex: Female

DRUGS (1)
  1. LATANOPROST. [Suspect]
     Active Substance: LATANOPROST
     Indication: PRODUCT USED FOR UNKNOWN INDICATION
     Dosage: 1 GTT, QD (INTO EACH EYE AT NIGHT)
     Route: 031
     Dates: start: 20180802

REACTIONS (2)
  - Tension headache [Unknown]
  - Accidental overdose [Unknown]
